FAERS Safety Report 12763344 (Version 3)
Quarter: 2019Q2

REPORT INFORMATION
  Report Type: Report from Study
  Country: FR (occurrence: FR)
  Receive Date: 20160920
  Receipt Date: 20190604
  Transmission Date: 20190711
  Serious: Yes (Hospitalization, Other)
  Sender: FDA-Public Use
  Company Number: FR-BRISTOL-MYERS SQUIBB COMPANY-BMS-2016-074589

PATIENT
  Age: 69 Year
  Sex: Female

DRUGS (1)
  1. ABATACEPT [Suspect]
     Active Substance: ABATACEPT
     Indication: POLYARTHRITIS
     Dosage: 125 MG, QWK
     Route: 058
     Dates: start: 201509

REACTIONS (3)
  - Humerus fracture [Recovered/Resolved]
  - Fall [Unknown]
  - Internal fixation of fracture [Unknown]

NARRATIVE: CASE EVENT DATE: 201608
